FAERS Safety Report 8805042 (Version 2)
Quarter: 2012Q4

REPORT INFORMATION
  Report Type: 
  Country: US (occurrence: US)
  Receive Date: 20120924
  Receipt Date: 20121010
  Transmission Date: 20130627
  Serious: Yes (Other)
  Sender: FDA-Public Use
  Company Number: CHPA2012US019900

PATIENT
  Age: 76 Year
  Sex: Female

DRUGS (3)
  1. MYOFLEX ANALGESIC CREME [Suspect]
     Indication: PAIN IN EXTREMITY
     Dosage: UNK, mostly at night
     Route: 061
  2. THERAPEUTIC MINERAL ICE [Suspect]
     Indication: PAIN IN EXTREMITY
     Dosage: UNK, mostly at night
     Route: 061
  3. DRUG THERAPY NOS [Concomitant]
     Dosage: UNK, UNK

REACTIONS (1)
  - Lymphoedema [Not Recovered/Not Resolved]
